FAERS Safety Report 8194671-4 (Version None)
Quarter: 2012Q1

REPORT INFORMATION
  Report Type: 
  Country: None (occurrence: None)
  Receive Date: 20120308
  Receipt Date: 20111117
  Transmission Date: 20120608
  Serious: No
  Sender: FDA-Public Use
  Company Number: US-GLAXOSMITHKLINE-A0892491A

PATIENT
  Age: 56 Year
  Sex: Female

DRUGS (4)
  1. NICODERM CQ [Suspect]
     Indication: EX-TOBACCO USER
  2. NICODERM CQ [Suspect]
     Indication: EX-TOBACCO USER
  3. NICORETTE [Suspect]
     Indication: OBSESSIVE THOUGHTS
  4. NICORETTE [Suspect]
     Indication: OBSESSIVE THOUGHTS

REACTIONS (5)
  - DRUG ADMINISTRATION ERROR [None]
  - RESTLESSNESS [None]
  - OBSESSIVE THOUGHTS [None]
  - PRODUCT QUALITY ISSUE [None]
  - ABNORMAL DREAMS [None]
